FAERS Safety Report 11082296 (Version 2)
Quarter: 2015Q2

REPORT INFORMATION
  Report Type: Spontaneous
  Country: US (occurrence: US)
  Receive Date: 20150501
  Receipt Date: 20150610
  Transmission Date: 20150821
  Serious: No
  Sender: FDA-Public Use
  Company Number: US-PFIZER INC-2015141985

PATIENT
  Age: 62 Year
  Sex: Female
  Weight: 108.84 kg

DRUGS (5)
  1. ATENOLOL. [Concomitant]
     Active Substance: ATENOLOL
     Dosage: UNK
  2. LYRICA [Suspect]
     Active Substance: PREGABALIN
     Indication: PAIN
     Dosage: 75 MG, 2X/DAY
     Dates: start: 2014
  3. ACETAMINOPHEN. [Concomitant]
     Active Substance: ACETAMINOPHEN
     Dosage: UNK
  4. METHIMAZOLE. [Concomitant]
     Active Substance: METHIMAZOLE
     Dosage: UNK
  5. ALLERGY SINUS [Concomitant]
     Dosage: UNK

REACTIONS (3)
  - Hypersensitivity [Unknown]
  - Ear disorder [Unknown]
  - Aphonia [Unknown]

NARRATIVE: CASE EVENT DATE: 201504
